FAERS Safety Report 8914422 (Version 1)
Quarter: 2012Q4

REPORT INFORMATION
  Report Type: 
  Country: CA (occurrence: CA)
  Receive Date: 20121116
  Receipt Date: 20121116
  Transmission Date: 20130627
  Serious: No
  Sender: FDA-Public Use
  Company Number: CA-TEVA-368592USA

PATIENT
  Sex: Female

DRUGS (1)
  1. PLAN B [Suspect]
     Indication: CONTRACEPTION
     Dosage: 2 tabs (2x0.75mg)
     Route: 048
     Dates: start: 20121101, end: 20121101

REACTIONS (1)
  - Abdominal pain upper [Unknown]
